FAERS Safety Report 10613873 (Version 10)
Quarter: 2020Q4

REPORT INFORMATION
  Report Type: Report from Study
  Country: TR (occurrence: TR)
  Receive Date: 20141128
  Receipt Date: 20201126
  Transmission Date: 20210113
  Serious: Yes (Death)
  Sender: FDA-Public Use
  Company Number: TR-ROCHE-1493910

PATIENT
  Age: 69 Year
  Sex: Male
  Weight: 64.5 kg

DRUGS (36)
  1. PERTUZUMAB. [Suspect]
     Active Substance: PERTUZUMAB
     Indication: HER2 POSITIVE GASTRIC CANCER
     Dosage: INTERRUPTED
     Route: 042
     Dates: start: 20141114
  2. BLOOD TRANSFUSION [Concomitant]
     Active Substance: HUMAN RED BLOOD CELL
     Indication: ANAEMIA
     Dosage: 2 UNIT EVERY DAY
     Route: 042
     Dates: start: 20150126, end: 20150126
  3. SULCID [AMPICILLIN SODIUM;SULBACTAM SODIUM] [Concomitant]
     Indication: URINARY TRACT INFECTION
     Route: 042
     Dates: start: 20150216, end: 20150227
  4. EMEND [Concomitant]
     Active Substance: APREPITANT
     Indication: VOMITING
     Route: 048
     Dates: start: 20141114, end: 20141114
  5. RANITIDIN [Concomitant]
     Active Substance: RANITIDINE HYDROCHLORIDE
     Indication: GASTROOESOPHAGEAL REFLUX DISEASE
     Dosage: FREQUENCY: PRN (AS NEEDED)
     Route: 042
     Dates: start: 20141114, end: 20160530
  6. METOCLOPRAMIDE HYDROCHLORIDE. [Concomitant]
     Active Substance: METOCLOPRAMIDE HYDROCHLORIDE
     Indication: VOMITING
     Route: 042
     Dates: start: 20141117, end: 20141117
  7. CLEXANE [Concomitant]
     Active Substance: ENOXAPARIN SODIUM
     Indication: THROMBOSIS PROPHYLAXIS
     Route: 030
     Dates: start: 20141201, end: 20160530
  8. TRASTUZUMAB. [Suspect]
     Active Substance: TRASTUZUMAB
     Indication: HER2 POSITIVE GASTRIC CANCER
     Dosage: MOST RECENT DOSE RECEIVED ON 14/NOV/2014, LOADING DOSE, INTERRUPTED
     Route: 042
     Dates: start: 20141114
  9. CISPLATIN. [Suspect]
     Active Substance: CISPLATIN
     Indication: HER2 POSITIVE GASTRIC CANCER
     Dosage: MOST RECENT DOSE RECEIVED ON 14/NOV/2014
     Route: 042
     Dates: start: 20141114
  10. PARACETAMOL [Concomitant]
     Active Substance: ACETAMINOPHEN
     Indication: CHILLS
     Dosage: EVERY DAY
     Route: 048
     Dates: start: 20141114, end: 20141114
  11. BLOOD TRANSFUSION [Concomitant]
     Active Substance: HUMAN RED BLOOD CELL
     Dosage: 1 UNIT
     Route: 042
     Dates: start: 20150414, end: 20150414
  12. POTASSIUM CHLORIDE. [Concomitant]
     Active Substance: POTASSIUM CHLORIDE
     Indication: NEPHROPATHY
     Dosage: INDICATION - NEPHROPATHY DUE TO CISPLATIN?FREQUENCY: PRN (AS NEEDED)
     Route: 042
     Dates: start: 20141114, end: 20141114
  13. TAMPROST MR [Concomitant]
     Indication: URINARY TRACT INFECTION
     Route: 048
     Dates: start: 20150324, end: 20150421
  14. PANTOPRAZOLE [Concomitant]
     Active Substance: PANTOPRAZOLE
     Indication: GASTROOESOPHAGEAL REFLUX DISEASE
     Route: 048
     Dates: start: 20141118, end: 20160530
  15. AMPISID [SULTAMICILLIN] [Concomitant]
     Indication: URINARY TRACT INFECTION
     Route: 042
     Dates: start: 20150216, end: 20150226
  16. DEKORT [Concomitant]
     Active Substance: DEXAMETHASONE
     Indication: HYPERSENSITIVITY
     Route: 042
     Dates: start: 20141114
  17. METOCLOPRAMIDE HYDROCHLORIDE. [Concomitant]
     Active Substance: METOCLOPRAMIDE HYDROCHLORIDE
     Indication: NAUSEA
     Route: 042
     Dates: start: 20141118, end: 20160530
  18. HEPARIN SODIUM. [Concomitant]
     Active Substance: HEPARIN SODIUM
     Route: 042
     Dates: start: 20150226, end: 20150226
  19. CAPECITABINE. [Suspect]
     Active Substance: CAPECITABINE
     Indication: HER2 POSITIVE GASTRIC CANCER
     Dosage: MOST RECENT DOSE RECEIVED ON 15/NOV/2014
     Route: 048
     Dates: start: 20141114
  20. PHENIRAMINE [Concomitant]
     Active Substance: PHENIRAMINE
     Indication: CHILLS
     Route: 042
     Dates: start: 20141114, end: 20141114
  21. DEXAMETHASONE. [Concomitant]
     Active Substance: DEXAMETHASONE
     Indication: CHILLS
     Dosage: EVERY DAY
     Route: 042
     Dates: start: 20141114, end: 20141114
  22. EMEND [Concomitant]
     Active Substance: APREPITANT
     Indication: VOMITING
     Dosage: FREQUENCY: PRN (AS NEEDED)
     Route: 048
     Dates: start: 20141115, end: 20141116
  23. MAGNESIUM SULFATE. [Concomitant]
     Active Substance: MAGNESIUM SULFATE
     Indication: NEPHROPATHY
     Dosage: INDICATION -NEPHROPATHY DUE TO CISPLATIN?FREQUENCY: PRN (AS NEEDED)
     Route: 042
     Dates: start: 20141114, end: 20141114
  24. AMPICILLIN/SULBACTAM [Concomitant]
     Active Substance: AMPICILLIN SODIUM\SULBACTAM SODIUM
     Indication: PERICARDIAL EFFUSION
     Route: 042
     Dates: start: 20150928, end: 20151012
  25. ACETYLCYSTEINE. [Concomitant]
     Active Substance: ACETYLCYSTEINE
     Indication: CHRONIC OBSTRUCTIVE PULMONARY DISEASE
     Route: 042
     Dates: start: 20141122, end: 20160530
  26. BLOOD TRANSFUSION [Concomitant]
     Active Substance: HUMAN RED BLOOD CELL
     Dosage: 1 UNIT
     Route: 042
     Dates: start: 20150224, end: 20150225
  27. AVIL [Concomitant]
     Active Substance: PHENIRAMINE
     Indication: HYPERSENSITIVITY
     Route: 042
     Dates: start: 20141114
  28. LANSOR [Concomitant]
     Active Substance: LANSOPRAZOLE
     Indication: GASTROOESOPHAGEAL REFLUX DISEASE
     Dosage: FREQUENCY: PRN (AS NEEDED)
     Route: 048
     Dates: start: 20141114, end: 20160530
  29. BUDECORT [Concomitant]
     Active Substance: BUDESONIDE
     Indication: CHRONIC OBSTRUCTIVE PULMONARY DISEASE
     Route: 042
     Dates: start: 20141118, end: 20160530
  30. COMBIVENT [Concomitant]
     Active Substance: ALBUTEROL SULFATE\IPRATROPIUM BROMIDE
     Indication: CHRONIC OBSTRUCTIVE PULMONARY DISEASE
     Dosage: ROUTE: IH (INHALED)
     Dates: start: 20141122, end: 20160530
  31. NORVASC [Concomitant]
     Active Substance: AMLODIPINE BESYLATE
     Indication: HYPERTENSION
     Dosage: EVERY DAY
     Route: 048
     Dates: start: 20060101, end: 20160530
  32. BLOOD TRANSFUSION [Concomitant]
     Active Substance: HUMAN RED BLOOD CELL
     Dosage: 1 UNIT
     Route: 042
     Dates: start: 20150505, end: 20150505
  33. ALOXI [Concomitant]
     Active Substance: PALONOSETRON HYDROCHLORIDE
     Indication: VOMITING
     Dosage: FREQUENCY: PRN (AS NEEDED)
     Route: 042
     Dates: start: 20141114, end: 20141114
  34. HYDROCHLOROTHIAZIDE;OLMESARTAN MEDOXOMIL [Concomitant]
     Active Substance: HYDROCHLOROTHIAZIDE\OLMESARTAN MEDOXOMIL
     Indication: HYPERTENSION
     Route: 048
     Dates: start: 20060101
  35. PRIMSEL [Concomitant]
     Indication: VOMITING
     Route: 042
     Dates: start: 20141117, end: 20160530
  36. BLOOD TRANSFUSION [Concomitant]
     Active Substance: HUMAN RED BLOOD CELL
     Dosage: 1 UNIT
     Route: 042
     Dates: start: 20150219, end: 20150219

REACTIONS (1)
  - Acute kidney injury [Fatal]

NARRATIVE: CASE EVENT DATE: 20141117
